FAERS Safety Report 8813043 (Version 3)
Quarter: 2014Q3

REPORT INFORMATION
  Report Type: Report from Study
  Country: US (occurrence: US)
  Receive Date: 20120927
  Receipt Date: 20140717
  Transmission Date: 20150326
  Serious: Yes (Hospitalization)
  Sender: FDA-Public Use
  Company Number: US-JNJFOC-20120909392

PATIENT
  Age: 25 Year
  Sex: Female
  Weight: 90.1 kg

DRUGS (9)
  1. TYLENOL [Suspect]
     Active Substance: ACETAMINOPHEN
     Indication: OROPHARYNGEAL PAIN
     Dosage: 2 TABLETS, EVERY 6 HOURS
     Route: 048
     Dates: start: 201209
  2. TYLENOL [Suspect]
     Active Substance: ACETAMINOPHEN
     Indication: OROPHARYNGEAL PAIN
     Dosage: 1 TABLET, 5 TIMES DAILY FOR ABOUT 1 WEEK
     Route: 048
     Dates: start: 201209, end: 201209
  3. VICKS NYQUIL [Suspect]
     Active Substance: ACETAMINOPHEN\DEXTROMETHORPHAN HYDROBROMIDE\DOXYLAMINE SUCCINATE
     Indication: MYALGIA
     Route: 048
     Dates: start: 201209
  4. VICKS NYQUIL [Suspect]
     Active Substance: ACETAMINOPHEN\DEXTROMETHORPHAN HYDROBROMIDE\DOXYLAMINE SUCCINATE
     Indication: PYREXIA
     Route: 048
     Dates: start: 201209
  5. TYLENOL [Suspect]
     Active Substance: ACETAMINOPHEN
     Indication: PYREXIA
     Dosage: 2 TABLETS, EVERY 6 HOURS
     Route: 048
     Dates: start: 201209
  6. VICKS NYQUIL [Suspect]
     Active Substance: ACETAMINOPHEN\DEXTROMETHORPHAN HYDROBROMIDE\DOXYLAMINE SUCCINATE
     Indication: OROPHARYNGEAL PAIN
     Route: 048
     Dates: start: 201209
  7. TYLENOL [Suspect]
     Active Substance: ACETAMINOPHEN
     Indication: MYALGIA
     Dosage: 2 TABLETS, EVERY 6 HOURS
     Route: 048
     Dates: start: 201209
  8. TYLENOL [Suspect]
     Active Substance: ACETAMINOPHEN
     Indication: MYALGIA
     Dosage: 1 TABLET, 5 TIMES DAILY FOR ABOUT 1 WEEK
     Route: 048
     Dates: start: 201209, end: 201209
  9. TYLENOL [Suspect]
     Active Substance: ACETAMINOPHEN
     Indication: PYREXIA
     Dosage: 1 TABLET, 5 TIMES DAILY FOR ABOUT 1 WEEK
     Route: 048
     Dates: start: 201209, end: 201209

REACTIONS (7)
  - Abdominal pain upper [Recovered/Resolved]
  - Vomiting [Recovered/Resolved]
  - Overdose [Recovered/Resolved]
  - Renal failure acute [Unknown]
  - Prothrombin time prolonged [Recovered/Resolved]
  - Oropharyngeal pain [Recovered/Resolved]
  - Transaminases increased [Recovered/Resolved]

NARRATIVE: CASE EVENT DATE: 20120915
